FAERS Safety Report 10749795 (Version 1)
Quarter: 2015Q1

REPORT INFORMATION
  Report Type: Spontaneous
  Country: SE (occurrence: SE)
  Receive Date: 20150129
  Receipt Date: 20150129
  Transmission Date: 20150721
  Serious: Yes (Hospitalization, Other)
  Sender: FDA-Public Use
  Company Number: SE-GLAXOSMITHKLINE-SE2015009076

PATIENT

DRUGS (10)
  1. MOVICOL [Concomitant]
     Active Substance: POLYETHYLENE GLYCOL 3350\POTASSIUM CHLORIDE\SODIUM BICARBONATE\SODIUM CHLORIDE
  2. STESOLID [Concomitant]
     Active Substance: DIAZEPAM
  3. CANODERM [Concomitant]
  4. ERGENYL [Concomitant]
     Active Substance: VALPROIC ACID
  5. DULCOLAX [Concomitant]
     Active Substance: BISACODYL OR DOCUSATE SODIUM
  6. OMEPRAZOLE. [Concomitant]
     Active Substance: OMEPRAZOLE
  7. NEOTIGASON [Concomitant]
     Active Substance: ACITRETIN
  8. LAMICTAL [Suspect]
     Active Substance: LAMOTRIGINE
     Route: 048
     Dates: start: 20141123, end: 20141204
  9. LEVETIRACETAM. [Concomitant]
     Active Substance: LEVETIRACETAM
  10. KARBAMID [Concomitant]

REACTIONS (3)
  - General physical health deterioration [Recovered/Resolved]
  - Urinary retention [Recovered/Resolved]
  - Abnormal behaviour [Recovered/Resolved]

NARRATIVE: CASE EVENT DATE: 20141130
